FAERS Safety Report 6028900-X (Version None)
Quarter: 2008Q4

REPORT INFORMATION
  Report Type: 
  Country: None (occurrence: None)
  Receive Date: 20081230
  Receipt Date: 20081224
  Transmission Date: 20090506
  Serious: Yes (Life-Threatening)
  Sender: FDA-Public Use
  Company Number: POMP-1000439

PATIENT
  Age: 15 Year
  Weight: 53 kg

DRUGS (1)
  1. MYOZYME [Suspect]
     Indication: GLYCOGEN STORAGE DISEASE TYPE II
     Dosage: 1050 MG, INTRAVENOUS
     Route: 042
     Dates: start: 20070707

REACTIONS (1)
  - INTRACRANIAL ANEURYSM [None]
